FAERS Safety Report 10544637 (Version 2)
Quarter: 2014Q4

REPORT INFORMATION
  Report Type: Spontaneous
  Country: US (occurrence: US)
  Receive Date: 20141027
  Receipt Date: 20141027
  Transmission Date: 20150529
  Serious: Yes (Hospitalization)
  Sender: FDA-Public Use
  Company Number: US-ACTELION-A-US2014-105737

PATIENT
  Age: 23 Year
  Sex: Male

DRUGS (5)
  1. IRON [Concomitant]
     Active Substance: IRON
  2. LETAIRIS [Concomitant]
     Active Substance: AMBRISENTAN
  3. LASIX [Concomitant]
     Active Substance: FUROSEMIDE
  4. VELETRI [Suspect]
     Active Substance: EPOPROSTENOL
     Indication: PORTOPULMONARY HYPERTENSION
     Dosage: 22 NG/KG, PER MIN
     Route: 042
     Dates: start: 20140113
  5. ADCIRCA [Concomitant]
     Active Substance: TADALAFIL

REACTIONS (6)
  - Fatigue [Recovered/Resolved]
  - Pyrexia [Recovered/Resolved]
  - Medical device change [Recovered/Resolved with Sequelae]
  - Blood culture positive [Recovered/Resolved]
  - Chills [Recovered/Resolved]
  - Device related sepsis [Recovered/Resolved]
